FAERS Safety Report 9885532 (Version 1)
Quarter: 2014Q1

REPORT INFORMATION
  Report Type: Report from Study
  Country: US (occurrence: US)
  Receive Date: 20140210
  Receipt Date: 20140210
  Transmission Date: 20141002
  Serious: Yes (Life-Threatening)
  Sender: FDA-Public Use
  Company Number: US-CELGENEUS-163-21880-14020398

PATIENT
  Age: 68 Year
  Sex: Female
  Weight: 69 kg

DRUGS (7)
  1. REVLIMID [Suspect]
     Indication: ACUTE MYELOID LEUKAEMIA
     Dosage: 20 MILLIGRAM
     Route: 048
     Dates: start: 20140121, end: 20140131
  2. ACYCLOVIR [Concomitant]
     Indication: PROPHYLAXIS
     Dosage: 500 MILLIGRAM
     Route: 041
     Dates: start: 20140112
  3. FLUCONAZOLE [Concomitant]
     Indication: PRODUCT USED FOR UNKNOWN INDICATION
     Route: 041
     Dates: start: 20140125
  4. INSULIN [Concomitant]
     Indication: HYPERGLYCAEMIA
     Dosage: SCALE UNIT
     Route: 058
     Dates: start: 20140131
  5. MEROPENEM [Concomitant]
     Indication: ANTI-INFECTIVE THERAPY
     Dosage: 2000 MILLIGRAM
     Route: 041
     Dates: start: 20140131
  6. ONDANSETRON [Concomitant]
     Indication: NAUSEA
     Route: 041
     Dates: start: 20140131
  7. VANCOMYCIN [Concomitant]
     Indication: ANTI-INFECTIVE THERAPY
     Dosage: 2 GRAM
     Route: 041
     Dates: start: 20140131

REACTIONS (1)
  - Hypoxia [Not Recovered/Not Resolved]
